FAERS Safety Report 11577206 (Version 2)
Quarter: 2015Q4

REPORT INFORMATION
  Report Type: Spontaneous
  Country: US (occurrence: US)
  Receive Date: 20150930
  Receipt Date: 20151102
  Transmission Date: 20160304
  Serious: No
  Sender: FDA-Public Use
  Company Number: US-GLAXOSMITHKLINE-US2015138527

PATIENT
  Age: 58 Year
  Sex: Male

DRUGS (9)
  1. NOVOLOG [Concomitant]
     Active Substance: INSULIN ASPART
  2. DOXAZOSIN [Concomitant]
     Active Substance: DOXAZOSIN\DOXAZOSIN MESYLATE
  3. LOVAZA [Suspect]
     Active Substance: OMEGA-3-ACID ETHYL ESTERS
     Indication: BLOOD TRIGLYCERIDES INCREASED
     Dosage: 2 G, BID
     Route: 048
     Dates: start: 2007
  4. ZETIA [Concomitant]
     Active Substance: EZETIMIBE
  5. INVOKANA [Concomitant]
     Active Substance: CANAGLIFLOZIN
  6. JANUVIA [Concomitant]
     Active Substance: SITAGLIPTIN PHOSPHATE
  7. ASA [Concomitant]
     Active Substance: ASPIRIN
  8. LANTUS [Concomitant]
     Active Substance: INSULIN GLARGINE
  9. LISINOPRIL. [Concomitant]
     Active Substance: LISINOPRIL

REACTIONS (1)
  - Nausea [Recovered/Resolved]

NARRATIVE: CASE EVENT DATE: 20150926
